FAERS Safety Report 10728454 (Version 1)
Quarter: 2015Q1

REPORT INFORMATION
  Report Type: Spontaneous
  Country: US (occurrence: US)
  Receive Date: 20150122
  Receipt Date: 20150122
  Transmission Date: 20150721
  Serious: No
  Sender: FDA-Public Use
  Company Number: US-BRISTOL-MYERS SQUIBB COMPANY-BMS-2015-000472

PATIENT
  Sex: Male

DRUGS (6)
  1. BYDUREON [Suspect]
     Active Substance: EXENATIDE
     Indication: TYPE 2 DIABETES MELLITUS
     Dosage: 2 MG, UNK
     Route: 065
     Dates: start: 20141201
  2. METFORMIN [Concomitant]
     Active Substance: METFORMIN HYDROCHLORIDE
     Route: 048
  3. GLYBURIDE,METFORMIN HYDROCHLORIDE [Concomitant]
     Active Substance: GLYBURIDE\METFORMIN HYDROCHLORIDE
  4. NIASPAN [Concomitant]
     Active Substance: NIACIN
  5. NEOSPORIN [Concomitant]
     Active Substance: BACITRACIN ZINC\NEOMYCIN SULFATE\POLYMYXIN B SULFATE
  6. TRICLOSAN. [Concomitant]
     Active Substance: TRICLOSAN

REACTIONS (3)
  - Injection site haemorrhage [Unknown]
  - Injection site swelling [Unknown]
  - Injection site pruritus [Unknown]
